FAERS Safety Report 4768109-0 (Version None)
Quarter: 2005Q3

REPORT INFORMATION
  Report Type: 
  Country: None (occurrence: None)
  Receive Date: 20050912
  Receipt Date: 20050912
  Transmission Date: 20060218
  Serious: Yes (Other)
  Sender: FDA-Public Use
  Company Number: None

PATIENT
  Age: 63 Year
  Sex: Female
  Weight: 63.05 kg

DRUGS (1)
  1. EFFEXOR [Suspect]
     Indication: HOT FLUSH
     Dosage: 37.5 MGS ONLY 1 PILL

REACTIONS (12)
  - COLD SWEAT [None]
  - DIARRHOEA [None]
  - EYELID FUNCTION DISORDER [None]
  - FEAR [None]
  - FEELING ABNORMAL [None]
  - HEART RATE INCREASED [None]
  - HYPERHIDROSIS [None]
  - MALAISE [None]
  - MOBILITY DECREASED [None]
  - PARAESTHESIA [None]
  - THINKING ABNORMAL [None]
  - VOMITING [None]
